FAERS Safety Report 6205187-6 (Version None)
Quarter: 2009Q2

REPORT INFORMATION
  Report Type: 
  Country: None (occurrence: None)
  Receive Date: 20090527
  Receipt Date: 20090302
  Transmission Date: 20091009
  Serious: No
  Sender: FDA-Public Use
  Company Number: US-ABBOTT-09P-163-0560211-00

PATIENT
  Sex: Female

DRUGS (1)
  1. SIMCOR [Suspect]
     Indication: DRUG USE FOR UNKNOWN INDICATION
     Dosage: NOT REPORTED
     Dates: start: 20090221, end: 20090227

REACTIONS (4)
  - BACK PAIN [None]
  - RENAL DISORDER [None]
  - URINE ABNORMALITY [None]
  - URINE ODOUR ABNORMAL [None]
